FAERS Safety Report 19221812 (Version 1)
Quarter: 2021Q2

REPORT INFORMATION
  Report Type: Spontaneous
  Country: US (occurrence: US)
  Receive Date: 20210505
  Receipt Date: 20210505
  Transmission Date: 20210717
  Serious: No
  Sender: FDA-Public Use
  Company Number: None

PATIENT
  Age: 23 Year
  Sex: Male
  Weight: 63.9 kg

DRUGS (2)
  1. FINASTERIDE. [Suspect]
     Active Substance: FINASTERIDE
     Indication: PROPHYLAXIS
     Dosage: ?          QUANTITY:1 TABLET(S);?
     Route: 048
  2. FINASTERIDE. [Suspect]
     Active Substance: FINASTERIDE
     Indication: ALOPECIA
     Dosage: ?          QUANTITY:1 TABLET(S);?
     Route: 048

REACTIONS (10)
  - Suicidal ideation [None]
  - Panic attack [None]
  - Apathy [None]
  - Anxiety [None]
  - Loss of libido [None]
  - Initial insomnia [None]
  - Dissociation [None]
  - Sleep disorder [None]
  - Emotional disorder [None]
  - Weight decreased [None]
